FAERS Safety Report 11729582 (Version 1)
Quarter: 2015Q4

REPORT INFORMATION
  Report Type: Spontaneous
  Country: US (occurrence: US)
  Receive Date: 20151112
  Receipt Date: 20151112
  Transmission Date: 20160304
  Serious: Yes (Hospitalization, Other)
  Sender: FDA-Public Use
  Company Number: US-EMD SERONO-7019723

PATIENT
  Sex: Male
  Weight: 70 kg

DRUGS (3)
  1. IBUPROFEN. [Concomitant]
     Active Substance: IBUPROFEN
     Indication: PREMEDICATION
  2. HYDROCODONE [Concomitant]
     Active Substance: HYDROCODONE
     Indication: BACK PAIN
     Dates: start: 1989
  3. REBIF [Suspect]
     Active Substance: INTERFERON BETA-1A
     Indication: MULTIPLE SCLEROSIS
     Route: 058
     Dates: start: 20040420

REACTIONS (11)
  - Injection site pain [Not Recovered/Not Resolved]
  - Seizure [Unknown]
  - Physical assault [Recovering/Resolving]
  - Fatigue [Unknown]
  - Head injury [Not Recovered/Not Resolved]
  - Weight decreased [Recovering/Resolving]
  - Loss of consciousness [Recovered/Resolved]
  - Cerebral haemorrhage [Unknown]
  - Amnesia [Recovering/Resolving]
  - Dizziness [Not Recovered/Not Resolved]
  - Victim of crime [None]

NARRATIVE: CASE EVENT DATE: 2010
